FAERS Safety Report 8893683 (Version 1)
Quarter: 2012Q4

REPORT INFORMATION
  Report Type: 
  Country: US (occurrence: US)
  Receive Date: 20121107
  Receipt Date: 20121107
  Transmission Date: 20130627
  Serious: No
  Sender: FDA-Public Use
  Company Number: US-AMGEN-USASP2011060445

PATIENT
  Age: 70 Year
  Sex: Female
  Weight: 78.01 kg

DRUGS (11)
  1. ENBREL [Suspect]
     Indication: PRODUCT USED FOR UNKNOWN INDICATION
     Dosage: 50 mg, qwk
     Route: 058
  2. LIPITOR [Concomitant]
     Dosage: 40 mg, UNK
  3. NEXIUM [Concomitant]
     Dosage: 40 mg, UNK
  4. RELAFEN [Concomitant]
     Dosage: 500 mg, UNK
  5. CALCIUM + VIT D [Concomitant]
  6. VITAMIN D3 [Concomitant]
     Dosage: 400 unit, UNK
  7. CENTRUM [Concomitant]
  8. VITAMIN B COMPLEX [Concomitant]
  9. OMEGA 3 [Concomitant]
     Dosage: 1000 mg, UNK
  10. BAYER LOW [Concomitant]
     Dosage: 81 mg, UNK
  11. NABUMETONE [Concomitant]
     Dosage: 750 mg, UNK

REACTIONS (4)
  - Injection site vesicles [Unknown]
  - Injection site reaction [Unknown]
  - Injection site erythema [Unknown]
  - Injection site pruritus [Unknown]
